FAERS Safety Report 12109551 (Version 1)
Quarter: 2016Q1

REPORT INFORMATION
  Report Type: Spontaneous
  Country: US (occurrence: None)
  Receive Date: 20160223
  Receipt Date: 20160223
  Transmission Date: 20160526
  Serious: Yes (Other)
  Sender: FDA-Public Use
  Company Number: None

PATIENT
  Age: 63 Year
  Sex: Female
  Weight: 49.9 kg

DRUGS (4)
  1. BLACK WALNUT HULL [Concomitant]
  2. CLA 1500 [Concomitant]
  3. CALCIUM D [Concomitant]
     Active Substance: CALCIUM\VITAMIN D
  4. BUPROPION HYDROCHLORIDE SR [Suspect]
     Active Substance: BUPROPION HYDROCHLORIDE
     Indication: DEPRESSION
     Dosage: 2 PILLS TWICE DAILY TAKEN BY MOUTH
     Route: 048

REACTIONS (8)
  - Fatigue [None]
  - Abnormal behaviour [None]
  - Product substitution issue [None]
  - Nervousness [None]
  - Anger [None]
  - Depression [None]
  - Nausea [None]
  - Headache [None]

NARRATIVE: CASE EVENT DATE: 20150626
